FAERS Safety Report 21701634 (Version 1)
Quarter: 2022Q4

REPORT INFORMATION
  Report Type: Spontaneous
  Country: CN (occurrence: CN)
  Receive Date: 20221208
  Receipt Date: 20221208
  Transmission Date: 20230113
  Serious: Yes (Hospitalization, Other)
  Sender: FDA-Public Use
  Company Number: None

PATIENT
  Age: 34 Year
  Sex: Female

DRUGS (9)
  1. BLEOMYCIN [Suspect]
     Active Substance: BLEOMYCIN SULFATE
     Indication: Ovarian germ cell teratoma stage II
     Route: 065
  2. BLEOMYCIN [Suspect]
     Active Substance: BLEOMYCIN SULFATE
     Route: 065
  3. BLEOMYCIN [Suspect]
     Active Substance: BLEOMYCIN SULFATE
     Route: 065
     Dates: end: 202203
  4. ETOPOSIDE [Suspect]
     Active Substance: ETOPOSIDE
     Indication: Ovarian germ cell teratoma stage II
     Route: 065
  5. ETOPOSIDE [Suspect]
     Active Substance: ETOPOSIDE
     Route: 065
  6. ETOPOSIDE [Suspect]
     Active Substance: ETOPOSIDE
     Route: 065
     Dates: end: 202203
  7. CISPLATIN [Suspect]
     Active Substance: CISPLATIN
     Indication: Ovarian germ cell teratoma stage II
     Route: 065
  8. CISPLATIN [Suspect]
     Active Substance: CISPLATIN
     Route: 065
  9. CISPLATIN [Suspect]
     Active Substance: CISPLATIN
     Route: 065
     Dates: end: 202203

REACTIONS (2)
  - Growing teratoma syndrome [Recovered/Resolved]
  - Peritoneal gliomatosis [Recovered/Resolved]

NARRATIVE: CASE EVENT DATE: 20220101
